FAERS Safety Report 4812971-X (Version None)
Quarter: 2005Q4

REPORT INFORMATION
  Report Type: 
  Country: None (occurrence: None)
  Receive Date: 20051028
  Receipt Date: 20050525
  Transmission Date: 20060501
  Serious: Yes (Hospitalization)
  Sender: FDA-Public Use
  Company Number: US-GLAXOSMITHKLINE-A0560138A

PATIENT
  Age: 49 Year
  Sex: Female

DRUGS (2)
  1. ADVAIR DISKUS 100/50 [Suspect]
     Indication: CHRONIC OBSTRUCTIVE PULMONARY DISEASE
     Route: 055
     Dates: start: 20050302, end: 20050405
  2. SUDAFED 12 HOUR [Concomitant]

REACTIONS (11)
  - CANDIDIASIS [None]
  - EATING DISORDER [None]
  - HYPERSENSITIVITY [None]
  - INSOMNIA [None]
  - LIP PAIN [None]
  - OEDEMA MOUTH [None]
  - ORAL CANDIDIASIS [None]
  - ORAL PAIN [None]
  - PHARYNGEAL OEDEMA [None]
  - SWELLING FACE [None]
  - THROAT TIGHTNESS [None]
